FAERS Safety Report 18634481 (Version 1)
Quarter: 2020Q4

REPORT INFORMATION
  Report Type: Report from Study
  Country: US (occurrence: US)
  Receive Date: 20201218
  Receipt Date: 20201218
  Transmission Date: 20210114
  Serious: Yes (Other)
  Sender: FDA-Public Use
  Company Number: US-HORIZON-2020HZN02139

PATIENT
  Age: 69 Year
  Sex: Male

DRUGS (3)
  1. HUMULIN NOS [Concomitant]
     Active Substance: INSULIN HUMAN
  2. KRYSTEXXA [Suspect]
     Active Substance: PEGLOTICASE
     Indication: GOUT
     Dates: start: 202009
  3. NOVOLIN NOS [Concomitant]
     Active Substance: INSULIN HUMAN

REACTIONS (1)
  - Blood glucose increased [Recovered/Resolved]
